FAERS Safety Report 19268948 (Version 2)
Quarter: 2022Q3

REPORT INFORMATION
  Report Type: Spontaneous
  Country: PK (occurrence: PK)
  Receive Date: 20210517
  Receipt Date: 20220907
  Transmission Date: 20221027
  Serious: Yes (Death, Other)
  Sender: FDA-Public Use
  Company Number: PK-PFIZER INC-2021492349

PATIENT
  Age: 57 Year
  Sex: Male

DRUGS (2)
  1. SUTENT [Suspect]
     Active Substance: SUNITINIB MALATE
     Indication: Gastrointestinal stromal tumour
     Dosage: 50 MG, ONCE DAILY, 4 WEEKS ON, 2 WEEKS OFF
     Route: 048
  2. SUTENT [Suspect]
     Active Substance: SUNITINIB MALATE
     Dosage: 50 MG, 1X/DAY
     Route: 048
     Dates: start: 202105, end: 202208

REACTIONS (5)
  - Death [Fatal]
  - Depressed level of consciousness [Unknown]
  - Restlessness [Unknown]
  - Somnolence [Unknown]
  - Blood pressure systolic increased [Unknown]
